FAERS Safety Report 5517956-6 (Version None)
Quarter: 2007Q4

REPORT INFORMATION
  Report Type: 
  Country: None (occurrence: None)
  Receive Date: 20071115
  Receipt Date: 20071107
  Transmission Date: 20080405
  Serious: Yes (Other)
  Sender: FDA-Public Use
  Company Number: PHEH2004US10494

PATIENT

DRUGS (7)
  1. PREMARIN [Suspect]
     Indication: HORMONE REPLACEMENT THERAPY
     Dosage: UNK, UNK
     Dates: start: 19910101, end: 19990101
  2. PROVERA [Suspect]
     Indication: HORMONE REPLACEMENT THERAPY
     Dosage: UNK, UNK
     Dates: start: 19910101, end: 19990101
  3. ESTRADERM [Suspect]
     Indication: HORMONE REPLACEMENT THERAPY
     Dosage: UNK, UNK
     Route: 062
     Dates: start: 19910101, end: 19990101
  4. MEDROXYPROGESTERONE [Suspect]
     Indication: HORMONE REPLACEMENT THERAPY
     Dosage: 5 MG, UNK
     Dates: start: 19980729, end: 19991001
  5. ESTRACE [Suspect]
     Indication: HORMONE REPLACEMENT THERAPY
  6. INDERAL [Concomitant]
     Indication: PALPITATIONS
     Dosage: 10 MG, QD
  7. NEXIUM [Concomitant]
     Indication: DYSPEPSIA

REACTIONS (50)
  - ABDOMINAL DISTENSION [None]
  - ABDOMINAL PAIN UPPER [None]
  - ANXIETY [None]
  - ASTHENIA [None]
  - AUTONOMIC NERVOUS SYSTEM IMBALANCE [None]
  - BACK PAIN [None]
  - BACTERIAL TEST POSITIVE [None]
  - BIOPSY BREAST ABNORMAL [None]
  - BLEPHAROPLASTY [None]
  - BODY DYSMORPHIC DISORDER [None]
  - BREAST CANCER [None]
  - BREAST CYST [None]
  - BREAST HAEMATOMA [None]
  - BREAST OEDEMA [None]
  - BURSITIS [None]
  - CONSTIPATION [None]
  - DEAFNESS NEUROSENSORY [None]
  - DEPRESSION [None]
  - DEPRESSION POSTOPERATIVE [None]
  - DOLICHOCOLON [None]
  - FALL [None]
  - FATIGUE [None]
  - GASTRITIS [None]
  - GASTROOESOPHAGEAL REFLUX DISEASE [None]
  - HAEMORRHOIDS [None]
  - HOT FLUSH [None]
  - HYPERHIDROSIS [None]
  - HYPERTENSION [None]
  - INTESTINAL POLYP [None]
  - LIBIDO DECREASED [None]
  - MALAISE [None]
  - MALIGNANT BREAST LUMP REMOVAL [None]
  - MAMMOGRAM ABNORMAL [None]
  - MASTECTOMY [None]
  - NEOPLASM MALIGNANT [None]
  - NERVE ROOT LESION [None]
  - NERVOUSNESS [None]
  - OESTROGEN RECEPTOR ASSAY POSITIVE [None]
  - OSTEOPENIA [None]
  - PAIN [None]
  - PAIN IN EXTREMITY [None]
  - PROGESTERONE RECEPTOR ASSAY POSITIVE [None]
  - RADIATION SKIN INJURY [None]
  - RADIOTHERAPY [None]
  - SCOLIOSIS [None]
  - SEROMA [None]
  - SPINAL OSTEOARTHRITIS [None]
  - TINNITUS [None]
  - UTERINE LEIOMYOMA [None]
  - WEIGHT INCREASED [None]
